FAERS Safety Report 6176791-9 (Version None)
Quarter: 2009Q2

REPORT INFORMATION
  Report Type: 
  Country: None (occurrence: None)
  Receive Date: 20090501
  Receipt Date: 20090425
  Transmission Date: 20091009
  Serious: No
  Sender: FDA-Public Use
  Company Number: US-B.I. PHARMACEUTICALS,INC./RIDGEFIELD-2009-BP-05406BP

PATIENT
  Sex: Female

DRUGS (3)
  1. ZANTAC 150 [Suspect]
     Indication: DYSPEPSIA
     Route: 048
     Dates: start: 20090401
  2. TYLENOL [Concomitant]
     Indication: SCIATIC NERVE INJURY
     Route: 048
  3. BUMEX [Concomitant]
     Indication: FLUID RETENTION

REACTIONS (3)
  - DRUG INEFFECTIVE [None]
  - FREQUENT BOWEL MOVEMENTS [None]
  - GASTROINTESTINAL HYPERMOTILITY [None]
